FAERS Safety Report 5805607-2 (Version None)
Quarter: 2008Q3

REPORT INFORMATION
  Report Type: 
  Country: None (occurrence: None)
  Receive Date: 20080708
  Receipt Date: 20080708
  Transmission Date: 20090109
  Serious: Yes (Death)
  Sender: FDA-Public Use
  Company Number: None

PATIENT
  Sex: Female
  Weight: 85.2762 kg

DRUGS (2)
  1. HUMIRA [Suspect]
     Indication: PSORIASIS
     Dosage: ONE INJECTION OF .8ML EVERY OTHER WEEK SQ
     Route: 058
     Dates: start: 20071029, end: 20080201
  2. METHOTREXATE [Suspect]
     Indication: ARTHRITIS
     Dosage: TWO TABLETS 3XWEEKLY PO
     Route: 048
     Dates: start: 20071029, end: 20080201

REACTIONS (4)
  - ASTHENIA [None]
  - MALAISE [None]
  - PRODUCTIVE COUGH [None]
  - PULMONARY CONGESTION [None]
